FAERS Safety Report 7808702-1 (Version None)
Quarter: 2011Q4

REPORT INFORMATION
  Report Type: 
  Country: None (occurrence: None)
  Receive Date: 20111012
  Receipt Date: 20111005
  Transmission Date: 20120403
  Serious: Yes (Other)
  Sender: FDA-Public Use
  Company Number: MY-ROXANE LABORATORIES, INC.-2011-RO-01417RO

PATIENT
  Age: 68 Year
  Sex: Female

DRUGS (5)
  1. AMLODIPINE [Suspect]
     Indication: HYPERTENSION
     Dosage: 10 MG
  2. FUROSEMIDE [Suspect]
     Indication: CARDIAC FAILURE
     Dosage: 20 MG
  3. ATENOLOL [Suspect]
     Indication: HYPERTENSION
     Dosage: 50 MG
  4. ENAM [Suspect]
     Indication: HYPERTENSION
     Dosage: 10 MG
  5. SPIRONOLACTONE [Suspect]
     Indication: CARDIAC FAILURE
     Dosage: 25 MG

REACTIONS (4)
  - CARDIAC FAILURE [None]
  - PARADOXICAL PRESSOR RESPONSE [None]
  - OEDEMA PERIPHERAL [None]
  - COUGH [None]
